FAERS Safety Report 8811718 (Version 1)
Quarter: 2012Q4

REPORT INFORMATION
  Report Type: 
  Country: GB (occurrence: GB)
  Receive Date: 20120927
  Receipt Date: 20120927
  Transmission Date: 20130627
  Serious: Yes (Hospitalization, Other)
  Sender: FDA-Public Use
  Company Number: PHBS2007GB03386

PATIENT
  Age: 7 Year
  Sex: Female

DRUGS (11)
  1. CICLOSPORIN [Suspect]
     Indication: BONE MARROW TRANSPLANT
     Dosage: 2.5 mg/kg, BID
     Dates: start: 200301
  2. CICLOSPORIN [Suspect]
     Dosage: 3 mg/kg, BID
  3. MYCOPHENOLATE MOFETIL [Suspect]
     Indication: PROPHYLAXIS AGAINST GRAFT VERSUS HOST DISEASE
  4. TACROLIMUS [Suspect]
     Indication: PROPHYLAXIS AGAINST GRAFT VERSUS HOST DISEASE
  5. GRANULOCYTE COLONY STIMULATING FACTOR [Concomitant]
     Indication: BONE MARROW TRANSPLANT
     Dosage: 5 ug/kg, per day
     Dates: start: 200301
  6. VIGAM [Concomitant]
     Indication: BONE MARROW TRANSPLANT
     Dosage: 0.4 g/kg, QW
     Route: 042
     Dates: start: 200301
  7. FLUDARABINE [Concomitant]
     Indication: BONE MARROW TRANSPLANT
     Dosage: 25 mg/m2, per day
     Dates: start: 200301
  8. BUSULPHAN [Concomitant]
     Indication: BONE MARROW TRANSPLANT
     Dosage: 3.5 mg/kg, per day
     Dates: start: 200301
  9. CYCLOPHOSPHAMIDE [Concomitant]
     Indication: BONE MARROW TRANSPLANT
     Dosage: 50 mg/kg, per day
     Dates: start: 200301
  10. PREDNISOLONE [Concomitant]
     Indication: BONE MARROW TRANSPLANT
     Dosage: 1 mg/kg, per day
     Route: 048
  11. METHYLPREDNISOLONE [Concomitant]
     Indication: BONE MARROW TRANSPLANT
     Dosage: 2 mg/kg, UNK
     Route: 042

REACTIONS (21)
  - Acute graft versus host disease in skin [Recovered/Resolved]
  - Rash maculo-papular [Recovered/Resolved]
  - Palmar-plantar erythrodysaesthesia syndrome [Recovered/Resolved]
  - Skin exfoliation [Recovered/Resolved]
  - Skin hypopigmentation [Recovered/Resolved]
  - Diarrhoea [Recovered/Resolved]
  - Vomiting [Recovered/Resolved]
  - Decreased appetite [Recovered/Resolved]
  - Mucosal inflammation [Unknown]
  - Cystitis haemorrhagic [Unknown]
  - Febrile neutropenia [Unknown]
  - Blood pressure abnormal [Unknown]
  - Oesophageal candidiasis [Unknown]
  - Graft versus host disease in intestine [Unknown]
  - Chronic graft versus host disease in skin [Unknown]
  - Chronic graft versus host disease in intestine [Unknown]
  - Mental disorder [Recovered/Resolved]
  - Abnormal behaviour [Recovered/Resolved]
  - Joint contracture [Unknown]
  - Alopecia [Not Recovered/Not Resolved]
  - Pyrexia [Unknown]
